FAERS Safety Report 21466156 (Version 1)
Quarter: 2022Q4

REPORT INFORMATION
  Report Type: Spontaneous
  Country: US (occurrence: None)
  Receive Date: 20221016
  Receipt Date: 20221016
  Transmission Date: 20230113
  Serious: Yes (Other)
  Sender: FDA-Public Use
  Company Number: None

PATIENT
  Age: 28 Year
  Sex: Female
  Weight: 56.25 kg

DRUGS (3)
  1. FALMINA [Suspect]
     Active Substance: ETHINYL ESTRADIOL\LEVONORGESTREL
     Indication: Contraception
     Dosage: OTHER STRENGTH : MG-MCG;?OTHER QUANTITY : 1 TABLET(S);?FREQUENCY : DAILY;?
     Route: 048
  2. Deva Multivitamin [Concomitant]
  3. Deva omega-3 supplement [Concomitant]

REACTIONS (4)
  - Product substitution issue [None]
  - Emotional disorder [None]
  - Crying [None]
  - Suicidal ideation [None]

NARRATIVE: CASE EVENT DATE: 20220603
